FAERS Safety Report 22024740 (Version 7)
Quarter: 2024Q1

REPORT INFORMATION
  Report Type: Spontaneous
  Country: US (occurrence: US)
  Receive Date: 20230223
  Receipt Date: 20240315
  Transmission Date: 20240410
  Serious: Yes (Other)
  Sender: FDA-Public Use
  Company Number: US-SA-SAC20230221001093

PATIENT
  Age: 15 Year
  Sex: Male

DRUGS (10)
  1. ELOCTATE [Suspect]
     Active Substance: EFMOROCTOCOG ALFA
     Indication: Haemorrhage
     Dosage: 2580 U (STRENGTH: 2580 U)
     Route: 042
  2. ELOCTATE [Suspect]
     Active Substance: EFMOROCTOCOG ALFA
     Indication: Haemorrhage
     Dosage: 2580 U (STRENGTH: 2580 U)
     Route: 042
  3. ELOCTATE [Suspect]
     Active Substance: EFMOROCTOCOG ALFA
     Dosage: 2825 U (+/- 10%) , Q4D
     Route: 042
  4. ELOCTATE [Suspect]
     Active Substance: EFMOROCTOCOG ALFA
     Dosage: 2825 U (+/- 10%) , Q4D
     Route: 042
  5. ELOCTATE [Suspect]
     Active Substance: EFMOROCTOCOG ALFA
     Dosage: 2825 U (+/- 10%) , PRN
     Route: 042
  6. ELOCTATE [Suspect]
     Active Substance: EFMOROCTOCOG ALFA
     Dosage: 2825 U (+/- 10%) , PRN
     Route: 042
  7. ELOCTATE [Suspect]
     Active Substance: EFMOROCTOCOG ALFA
     Dosage: 3030 U (+/-10%), Q4D FOR ACUTE BLEEDING EPISODE
     Route: 042
  8. ELOCTATE [Suspect]
     Active Substance: EFMOROCTOCOG ALFA
     Dosage: 3030 U (+/-10%), Q4D FOR ACUTE BLEEDING EPISODE
     Route: 042
  9. ELOCTATE [Suspect]
     Active Substance: EFMOROCTOCOG ALFA
     Dosage: 3030 U (+/-10%), PRN FOR ACUTE BLEEDING EPISODE
     Route: 042
  10. ELOCTATE [Suspect]
     Active Substance: EFMOROCTOCOG ALFA
     Dosage: 3030 U (+/-10%), PRN FOR ACUTE BLEEDING EPISODE
     Route: 042

REACTIONS (15)
  - Haemorrhage [Unknown]
  - Haemorrhage [Recovered/Resolved]
  - Haemorrhage [Unknown]
  - Limb injury [Unknown]
  - Peripheral swelling [Unknown]
  - Limb injury [Unknown]
  - Traumatic haemorrhage [Unknown]
  - Spontaneous haemorrhage [Unknown]
  - SARS-CoV-2 test positive [Unknown]
  - Pain in extremity [Unknown]
  - Epistaxis [Unknown]
  - COVID-19 [Unknown]
  - Streptococcal infection [Unknown]
  - Joint swelling [Unknown]
  - Extra dose administered [Unknown]

NARRATIVE: CASE EVENT DATE: 20230201
